FAERS Safety Report 15686919 (Version 3)
Quarter: 2019Q2

REPORT INFORMATION
  Report Type: Report from Study
  Country: US (occurrence: US)
  Receive Date: 20181204
  Receipt Date: 20190522
  Transmission Date: 20190711
  Serious: Yes (Death, Hospitalization)
  Sender: FDA-Public Use
  Company Number: US-ACTELION-A-US2018-174658

PATIENT
  Age: 66 Year
  Sex: Male
  Weight: 73.02 kg

DRUGS (2)
  1. VENTAVIS [Suspect]
     Active Substance: ILOPROST
     Indication: PULMONARY ARTERIAL HYPERTENSION
     Dosage: 5 MCG,4-6 TIMES PER DAY
     Route: 055
  2. VENTAVIS [Suspect]
     Active Substance: ILOPROST
     Dosage: 5 MCG, 6-9 TIMES PER DAY
     Route: 055

REACTIONS (9)
  - Staphylococcal sepsis [Recovering/Resolving]
  - Dialysis [Recovering/Resolving]
  - Hospitalisation [Unknown]
  - Renal disorder [Recovering/Resolving]
  - Bacteraemia [Unknown]
  - Pneumonia [Unknown]
  - Back pain [Recovering/Resolving]
  - Renal failure [Unknown]
  - Death [Fatal]

NARRATIVE: CASE EVENT DATE: 20181030
